FAERS Safety Report 11990366 (Version 2)
Quarter: 2016Q1

REPORT INFORMATION
  Report Type: Other
  Country: GB (occurrence: GB)
  Receive Date: 20160202
  Receipt Date: 20160224
  Transmission Date: 20160526
  Serious: Yes (Other)
  Sender: FDA-Public Use
  Company Number: GB-MYLANLABS-2016M1003479

PATIENT

DRUGS (3)
  1. DIHYDROCODEINE TARTRATE [Suspect]
     Active Substance: DIHYDROCODEINE BITARTRATE
     Indication: PELVIC PAIN
     Dosage: UNK
     Route: 048
     Dates: start: 20151019, end: 20151116
  2. TRAMADOL. [Suspect]
     Active Substance: TRAMADOL
     Indication: PELVIC PAIN
     Dosage: 50 MG, UNK
     Route: 048
     Dates: start: 20150817, end: 20151026
  3. LOESTRIN NOS [Concomitant]
     Active Substance: ETHINYL ESTRADIOL\NORETHINDRONE ACETATE
     Dosage: UNK

REACTIONS (2)
  - Nausea [Recovered/Resolved with Sequelae]
  - Fatigue [Recovered/Resolved with Sequelae]
